FAERS Safety Report 9103529 (Version 1)
Quarter: 2013Q1

REPORT INFORMATION
  Report Type: Spontaneous
  Country: GR (occurrence: GR)
  Receive Date: 20130219
  Receipt Date: 20130219
  Transmission Date: 20140127
  Serious: Yes (Other)
  Sender: FDA-Public Use
  Company Number: GR-BAYER-2013-019256

PATIENT
  Age: 51 Year
  Sex: Male

DRUGS (7)
  1. IOPROMIDE [Suspect]
     Indication: ARTERIOGRAM CORONARY
     Dosage: 60 ML, UNK
     Route: 042
     Dates: start: 20110119, end: 20110119
  2. IOPROMIDE [Suspect]
     Indication: CHEST PAIN
  3. BISOPROLOL [Suspect]
     Indication: HYPERTENSION
     Dosage: DAILY DOSE 5 MG
     Dates: start: 2008
  4. BISOPROLOL [Suspect]
     Indication: CARDIAC FAILURE
  5. RAMIPRIL [Suspect]
     Indication: HYPERTENSION
     Dosage: DAILY DOSE 5 MG
     Dates: start: 2008
  6. RAMIPRIL [Suspect]
     Indication: CARDIAC FAILURE
  7. L-THYROXIN [Concomitant]
     Indication: HYPOTHYROIDISM
     Dosage: DAILY DOSE 150 MG
     Dates: start: 1997

REACTIONS (8)
  - Eosinophilic pneumonia chronic [Recovering/Resolving]
  - Pulmonary fibrosis [Recovering/Resolving]
  - Dyspnoea [Recovering/Resolving]
  - Tachypnoea [Recovering/Resolving]
  - Hypoxia [Recovering/Resolving]
  - Tachycardia [Recovering/Resolving]
  - Hypersensitivity [Recovering/Resolving]
  - Alveolitis allergic [None]
